FAERS Safety Report 13600046 (Version 2)
Quarter: 2018Q2

REPORT INFORMATION
  Report Type: Spontaneous
  Country: US (occurrence: US)
  Receive Date: 20170601
  Receipt Date: 20180511
  Transmission Date: 20180711
  Serious: No
  Sender: FDA-Public Use
  Company Number: US-BIOGEN-2017BI00408431

PATIENT
  Sex: Female

DRUGS (1)
  1. AVONEX [Suspect]
     Active Substance: INTERFERON BETA-1A
     Indication: MULTIPLE SCLEROSIS
     Route: 030
     Dates: start: 20100528

REACTIONS (5)
  - Migraine [Not Recovered/Not Resolved]
  - Neuralgia [Not Recovered/Not Resolved]
  - Nervousness [Unknown]
  - Dizziness [Not Recovered/Not Resolved]
  - Loss of control of legs [Not Recovered/Not Resolved]
